FAERS Safety Report 5657794-7 (Version None)
Quarter: 2008Q1

REPORT INFORMATION
  Report Type: 
  Country: None (occurrence: None)
  Receive Date: 20080310
  Receipt Date: 20070320
  Transmission Date: 20080703
  Serious: No
  Sender: FDA-Public Use
  Company Number: US-ASTRAZENECA-2007UW05533

PATIENT
  Age: 32 Year
  Sex: Male
  Weight: 97.5 kg

DRUGS (1)
  1. ZESTRIL [Suspect]
     Indication: AORTIC STENOSIS
     Route: 048
     Dates: start: 20060701

REACTIONS (2)
  - HYPOAESTHESIA [None]
  - MUSCLE CONTRACTIONS INVOLUNTARY [None]
